FAERS Safety Report 9450881 (Version 1)
Quarter: 2013Q3

REPORT INFORMATION
  Report Type: Spontaneous
  Country: FR (occurrence: FR)
  Receive Date: 20130809
  Receipt Date: 20130809
  Transmission Date: 20140515
  Serious: Yes (Hospitalization)
  Sender: FDA-Public Use
  Company Number: FR-ASTRAZENECA-2013SE60440

PATIENT
  Age: 73 Year
  Sex: Female

DRUGS (1)
  1. INEXIUM [Suspect]
     Route: 048

REACTIONS (4)
  - Escherichia sepsis [Unknown]
  - Deficiency anaemia [Unknown]
  - Thrombocytopenia [Recovered/Resolved]
  - Oral candidiasis [Unknown]
